FAERS Safety Report 10537575 (Version 1)
Quarter: 2014Q4

REPORT INFORMATION
  Report Type: Spontaneous
  Country: US (occurrence: None)
  Receive Date: 20141022
  Receipt Date: 20141022
  Transmission Date: 20150529
  Serious: Yes (Hospitalization)
  Sender: FDA-Public Use
  Company Number: None

PATIENT
  Age: 61 Year
  Sex: Female
  Weight: 93 kg

DRUGS (11)
  1. CHLOECALCIFEROL [Concomitant]
  2. SIMEPREVIR 150 MG [Suspect]
     Active Substance: SIMEPREVIR
     Indication: HEPATITIS C
     Dosage: 1 CAP QD ORAL.
     Dates: start: 20140926, end: 20141008
  3. HYDROCHLOROTHIAZIDE. [Concomitant]
     Active Substance: HYDROCHLOROTHIAZIDE
  4. FEXOFENADINE [Concomitant]
     Active Substance: FEXOFENADINE\FEXOFENADINE HYDROCHLORIDE
  5. KCL [Concomitant]
     Active Substance: POTASSIUM CHLORIDE
  6. SOFOSBUVIR 400 MG [Suspect]
     Active Substance: SOFOSBUVIR
     Indication: HEPATITIS C
     Dosage: 1 CAP
     Route: 048
     Dates: start: 20140926, end: 20141008
  7. INDOMETHACIN. [Concomitant]
     Active Substance: INDOMETHACIN
  8. CLONIDINE. [Concomitant]
     Active Substance: CLONIDINE
  9. PSYLLIUM [Concomitant]
     Active Substance: PLANTAGO SEED
  10. PANTOPRAZOLE [Concomitant]
     Active Substance: PANTOPRAZOLE SODIUM
  11. FUROSEMIDE. [Concomitant]
     Active Substance: FUROSEMIDE

REACTIONS (8)
  - Electrocardiogram U-wave abnormality [None]
  - Chest pain [None]
  - Hyperbilirubinaemia [None]
  - Fatigue [None]
  - Hypokalaemia [None]
  - Nausea [None]
  - Epistaxis [None]
  - Aspartate aminotransferase increased [None]

NARRATIVE: CASE EVENT DATE: 20141008
